FAERS Safety Report 6464612-6 (Version None)
Quarter: 2009Q4

REPORT INFORMATION
  Report Type: 
  Country: None (occurrence: None)
  Receive Date: 20091201
  Receipt Date: 20091120
  Transmission Date: 20100525
  Serious: Yes (Other)
  Sender: FDA-Public Use
  Company Number: JP-MERCK-0910USA03279

PATIENT
  Age: 67 Year
  Sex: Female

DRUGS (2)
  1. COZAAR [Suspect]
     Route: 048
     Dates: start: 20081120, end: 20091016
  2. LIPITOR [Concomitant]
     Route: 048
     Dates: start: 20081120, end: 20091016

REACTIONS (2)
  - LICHEN PLANUS [None]
  - LICHENOID KERATOSIS [None]
